FAERS Safety Report 8820127 (Version 1)
Quarter: 2012Q4

REPORT INFORMATION
  Report Type: 
  Country: AU (occurrence: AU)
  Receive Date: 20121001
  Receipt Date: 20121001
  Transmission Date: 20130627
  Serious: Yes (Other)
  Sender: FDA-Public Use
  Company Number: PHHY2012AU083006

PATIENT
  Age: 82 Year
  Sex: Female

DRUGS (2)
  1. WARFARIN [Suspect]
  2. HEPARIN [Suspect]

REACTIONS (4)
  - Vascular pseudoaneurysm [Recovered/Resolved]
  - Haematoma [Recovered/Resolved]
  - Swelling [Unknown]
  - Pain [Unknown]
